FAERS Safety Report 9228614 (Version 1)
Quarter: 2013Q2

REPORT INFORMATION
  Report Type: Report from Study
  Country: FR (occurrence: FR)
  Receive Date: 20130412
  Receipt Date: 20130412
  Transmission Date: 20140414
  Serious: Yes (Death)
  Sender: FDA-Public Use
  Company Number: FR-CELGENEUS-056-CC292-13040600

PATIENT
  Age: 52 Year
  Sex: Male
  Weight: 91 kg

DRUGS (6)
  1. REVLIMID [Suspect]
     Indication: B-CELL LYMPHOMA
     Dosage: 15 MILLIGRAM
     Route: 048
     Dates: start: 20130319
  2. CC-292 [Suspect]
     Indication: B-CELL LYMPHOMA
     Dosage: 750 MILLIGRAM
     Route: 065
     Dates: start: 20130319
  3. ALBUMIN [Concomitant]
     Indication: HYPOALBUMINAEMIA
     Route: 065
     Dates: start: 20130325, end: 20130326
  4. ALBUMIN [Concomitant]
     Route: 065
     Dates: start: 20130330
  5. ALDACTONE [Concomitant]
     Indication: OEDEMA
     Route: 065
     Dates: start: 20130325, end: 20130331
  6. MORPHINE SULPHATE [Concomitant]
     Indication: PAIN
     Route: 065
     Dates: start: 20130318, end: 20130331

REACTIONS (3)
  - Sepsis [Fatal]
  - Ascites [None]
  - Pleural effusion [None]
